FAERS Safety Report 12140639 (Version 2)
Quarter: 2016Q1

REPORT INFORMATION
  Report Type: Report from Study
  Country: US (occurrence: US)
  Receive Date: 20160303
  Receipt Date: 20160316
  Transmission Date: 20160526
  Serious: Yes (Other)
  Sender: FDA-Public Use
  Company Number: US-AMGEN-USASL2016024625

PATIENT
  Age: 91 Year
  Sex: Male

DRUGS (1)
  1. REPATHA [Suspect]
     Active Substance: EVOLOCUMAB
     Indication: DYSLIPIDAEMIA
     Dosage: 140 MG, Q2WK
     Route: 065
     Dates: start: 20160203, end: 20160217

REACTIONS (7)
  - Surgery [Unknown]
  - Somnolence [Recovering/Resolving]
  - Aphasia [Recovering/Resolving]
  - Malaise [Unknown]
  - Balance disorder [Recovering/Resolving]
  - Dysstasia [Recovering/Resolving]
  - Loss of consciousness [Unknown]

NARRATIVE: CASE EVENT DATE: 201602
